FAERS Safety Report 9340106 (Version 2)
Quarter: 2013Q3

REPORT INFORMATION
  Report Type: Spontaneous
  Country: JP (occurrence: JP)
  Receive Date: 20130610
  Receipt Date: 20130905
  Transmission Date: 20140515
  Serious: Yes (Other)
  Sender: FDA-Public Use
  Company Number: JP-MPIJNJ-2013-04270

PATIENT
  Sex: 0

DRUGS (7)
  1. VELCADE [Suspect]
     Indication: PLASMA CELL MYELOMA
     Dosage: 1.3 MG/M2, 1/WEEK
     Route: 042
     Dates: start: 20121122
  2. DEXAMETHASONE [Suspect]
     Indication: PLASMA CELL MYELOMA
     Dosage: 8 MG, DAILY FOR 2 CONSECUTIVE DAYS
     Route: 042
  3. ELCATONIN [Suspect]
     Indication: PLASMA CELL MYELOMA
     Dosage: 40 IU, DAILY FOR 5 CONSECUTIVE DAYS
     Route: 042
  4. SODIUM BICARBONATE [Suspect]
     Indication: PLASMA CELL MYELOMA
     Dosage: 80 MMOL/L, UNK
     Route: 041
  5. NORMAL SALINE [Suspect]
     Indication: PLASMA CELL MYELOMA
     Dosage: 500 ML, BID
     Route: 042
  6. ZOLEDRONIC ACID [Suspect]
     Indication: PLASMA CELL MYELOMA
     Dosage: 4 MG, MONTHLY
     Route: 042
  7. SODIUM CHLORIDE [Concomitant]
     Dosage: 200 MMOL, QD
     Route: 041

REACTIONS (3)
  - Hyperchloraemia [Recovered/Resolved]
  - Hypernatraemia [Recovered/Resolved]
  - Altered state of consciousness [Recovered/Resolved]
